FAERS Safety Report 14994687 (Version 2)
Quarter: 2018Q4

REPORT INFORMATION
  Report Type: Spontaneous
  Country: DE (occurrence: DE)
  Receive Date: 20180611
  Receipt Date: 20181227
  Transmission Date: 20190204
  Serious: Yes (Hospitalization, Other)
  Sender: FDA-Public Use
  Company Number: PHHY2018DE019052

PATIENT
  Age: 54 Year
  Sex: Female

DRUGS (5)
  1. ABATACEPT [Suspect]
     Active Substance: ABATACEPT
     Indication: RHEUMATOID ARTHRITIS
     Dosage: UNK
     Route: 042
     Dates: start: 20170720, end: 20170816
  2. METHOTREXATE. [Suspect]
     Active Substance: METHOTREXATE
     Indication: RHEUMATOID ARTHRITIS
     Dosage: 7.5 MG, QW
     Route: 065
  3. ABATACEPT [Suspect]
     Active Substance: ABATACEPT
     Dosage: 500 MG, QMO
     Route: 042
     Dates: start: 20171005
  4. ABATACEPT [Suspect]
     Active Substance: ABATACEPT
     Dosage: 500 MG, QMO
     Route: 042
     Dates: start: 20171005, end: 20180604
  5. METHOTREXATE. [Suspect]
     Active Substance: METHOTREXATE
     Dosage: 7.5 MG, QWK
     Route: 065

REACTIONS (3)
  - Complicated appendicitis [Recovered/Resolved]
  - Rheumatoid arthritis [Recovered/Resolved]
  - Sebaceous gland disorder [Unknown]

NARRATIVE: CASE EVENT DATE: 20170728
